FAERS Safety Report 17535123 (Version 1)
Quarter: 2020Q1

REPORT INFORMATION
  Report Type: Spontaneous
  Country: PT (occurrence: PT)
  Receive Date: 20200312
  Receipt Date: 20200312
  Transmission Date: 20200409
  Serious: Yes (Other)
  Sender: FDA-Public Use
  Company Number: PT-PFM-2020-02689

PATIENT

DRUGS (3)
  1. VINORELBINE [Suspect]
     Active Substance: VINORELBINE TARTRATE
     Dosage: UNK
  2. CISPLATINA [Suspect]
     Active Substance: CISPLATIN
     Indication: LUNG SQUAMOUS CELL CARCINOMA STAGE II
     Dosage: CYCLICAL
     Route: 065
  3. VINORELBINE [Suspect]
     Active Substance: VINORELBINE TARTRATE
     Indication: SQUAMOUS CELL CARCINOMA OF LUNG
     Dosage: CYCLICAL
     Route: 065

REACTIONS (3)
  - Posterior reversible encephalopathy syndrome [Recovered/Resolved]
  - Leukopenia [Unknown]
  - Neutropenia [Unknown]
